FAERS Safety Report 20986535 (Version 2)
Quarter: 2022Q3

REPORT INFORMATION
  Report Type: Spontaneous
  Country: DE (occurrence: DE)
  Receive Date: 20220621
  Receipt Date: 20220629
  Transmission Date: 20221027
  Serious: Yes (Other)
  Sender: FDA-Public Use
  Company Number: DE-NOVARTISPH-NVSC2022DE140699

PATIENT
  Sex: Female

DRUGS (1)
  1. BISOPROLOL FUMARATE [Suspect]
     Active Substance: BISOPROLOL FUMARATE
     Indication: Hypertension
     Dosage: 0.5 DOSAGE FORM
     Route: 065
     Dates: start: 20220517

REACTIONS (3)
  - Depression suicidal [Not Recovered/Not Resolved]
  - Arrhythmia [Unknown]
  - Hypotension [Unknown]

NARRATIVE: CASE EVENT DATE: 20220614
